FAERS Safety Report 19857411 (Version 3)
Quarter: 2022Q4

REPORT INFORMATION
  Report Type: Report from Study
  Country: JP (occurrence: JP)
  Receive Date: 20210920
  Receipt Date: 20221128
  Transmission Date: 20230112
  Serious: Yes (Death)
  Sender: FDA-Public Use
  Company Number: JP-BAYER-2019-084869

PATIENT
  Age: 57 Year
  Sex: Female
  Weight: 48.6 kg

DRUGS (11)
  1. VENTAVIS [Suspect]
     Active Substance: ILOPROST
     Indication: Pulmonary arterial hypertension
     Dosage: 2.5 UG, 6ID
     Route: 055
     Dates: start: 20160829, end: 20160925
  2. VENTAVIS [Suspect]
     Active Substance: ILOPROST
     Indication: Pulmonary arterial hypertension
     Dosage: 2.5 UG, 9ID
     Route: 055
     Dates: start: 20160926, end: 20170205
  3. VENTAVIS [Suspect]
     Active Substance: ILOPROST
     Indication: Pulmonary arterial hypertension
     Dosage: 2.5 UG, 7ID
     Route: 055
     Dates: start: 20170206, end: 20190326
  4. KAYEXALATE [Concomitant]
     Active Substance: SODIUM POLYSTYRENE SULFONATE
     Dosage: DAILY DOSE 3.27 G
     Route: 048
  5. LOPERAMIDE [Concomitant]
     Active Substance: LOPERAMIDE
     Dosage: DAILY DOSE 1 MG
     Route: 048
     Dates: start: 20180723, end: 20190326
  6. HERBALS [Concomitant]
     Active Substance: HERBALS
     Dosage: DAILY DOSE 7.5 G
     Route: 048
     Dates: start: 20181217, end: 20190324
  7. DOBUTAMINE HYDROCHLORIDE [Concomitant]
     Active Substance: DOBUTAMINE HYDROCHLORIDE
     Dosage: DAILY DOSE 28.8 MG
     Dates: start: 20190325, end: 20190325
  8. DOBUTAMINE [Concomitant]
     Active Substance: DOBUTAMINE HYDROCHLORIDE
     Dosage: DAILY DOSE 28.8 MG
     Dates: start: 20190325, end: 20190331
  9. INOVAN [DOPAMINE HYDROCHLORIDE] [Concomitant]
     Dosage: DAILY DOSE 86.6 MG
     Dates: start: 20190330, end: 20190331
  10. NOREPINEPHRINE BITARTRATE [Concomitant]
     Active Substance: NOREPINEPHRINE BITARTRATE
     Dosage: DAILY DOSE 31.2 MG
     Dates: start: 20190325, end: 20190331
  11. MORPHINE [Concomitant]
     Active Substance: MORPHINE
     Dosage: DAILY DOSE 60 MG
     Dates: start: 20190330, end: 20190331

REACTIONS (1)
  - Pulmonary arterial hypertension [Fatal]

NARRATIVE: CASE EVENT DATE: 20190331
